FAERS Safety Report 12528798 (Version 1)
Quarter: 2016Q3

REPORT INFORMATION
  Report Type: Spontaneous
  Country: US (occurrence: US)
  Receive Date: 20160705
  Receipt Date: 20160705
  Transmission Date: 20161109
  Serious: No
  Sender: FDA-Public Use
  Company Number: US-CARDINAL HEALTH 418, INC.-1054686

PATIENT
  Sex: Male

DRUGS (2)
  1. SODIUM IODIDE I 123 [Suspect]
     Active Substance: SODIUM IODIDE I-123
     Indication: THYROID FUNCTION TEST ABNORMAL
     Route: 048
     Dates: start: 20160112, end: 20160112
  2. TECHNETIUM TC-99M GENERATOR [Interacting]
     Active Substance: TECHNETIUM TC-99M
     Dates: start: 20160112, end: 20160112

REACTIONS (1)
  - Drug ineffective [Unknown]

NARRATIVE: CASE EVENT DATE: 20160112
